FAERS Safety Report 5055147-6 (Version None)
Quarter: 2006Q3

REPORT INFORMATION
  Report Type: 
  Country: None (occurrence: None)
  Receive Date: 20060719
  Receipt Date: 20060707
  Transmission Date: 20061208
  Serious: Yes (Hospitalization)
  Sender: FDA-Public Use
  Company Number: CH-ROCHE-454666

PATIENT
  Age: 24 Year
  Sex: Male
  Weight: 57 kg

DRUGS (4)
  1. VALCYTE [Suspect]
     Indication: CYTOMEGALOVIRUS INFECTION
     Route: 048
     Dates: start: 20051125, end: 20051213
  2. BACTRIM [Concomitant]
     Dosage: STRENGTH REPORTED AS 800 MG / 160 MG.
     Route: 048
  3. FRAXIFORTE [Concomitant]
     Dosage: FORM REPORTED AS VIALS.
     Route: 058
     Dates: end: 20051219
  4. FRAXIPARINE [Concomitant]
     Dosage: FORM REPORTED AS VIALS.
     Route: 058
     Dates: end: 20051219

REACTIONS (6)
  - COORDINATION ABNORMAL [None]
  - DIZZINESS [None]
  - DYSPHAGIA [None]
  - NAUSEA [None]
  - NYSTAGMUS [None]
  - VOMITING [None]
